FAERS Safety Report 9413366 (Version 1)
Quarter: 2013Q3

REPORT INFORMATION
  Report Type: Spontaneous
  Country: US (occurrence: None)
  Receive Date: 20130709
  Receipt Date: 20130709
  Transmission Date: 20140515
  Serious: Yes (Hospitalization, Other)
  Sender: FDA-Public Use
  Company Number: 08-AUR-06740

PATIENT
  Age: 53 Year
  Sex: Female

DRUGS (6)
  1. ATENOLOL [Suspect]
     Indication: PALPITATIONS
     Dates: start: 2007, end: 200707
  2. ASPEGIC (ACETYLSALICYLIC ACID) [Concomitant]
  3. FOSINOPRIL (FOSINOPRIL) [Concomitant]
  4. RIVOTRIL (CLONAZEPAM) [Concomitant]
  5. INSULIN (INSULIN) [Concomitant]
  6. PRAVASTATINE(PRAVASTATIN) [Concomitant]

REACTIONS (7)
  - Hyperkalaemia [None]
  - Blood creatinine increased [None]
  - Erysipelas [None]
  - Feeling hot [None]
  - Inflammation [None]
  - Dermatitis [None]
  - Creatinine renal clearance decreased [None]
